FAERS Safety Report 24993990 (Version 2)
Quarter: 2025Q2

REPORT INFORMATION
  Report Type: Spontaneous
  Country: PK (occurrence: PK)
  Receive Date: 20250221
  Receipt Date: 20250420
  Transmission Date: 20250717
  Serious: Yes (Other)
  Sender: AMGEN
  Company Number: PK-PFIZER INC-PV202200044950

PATIENT
  Age: 46 Year
  Sex: Female

DRUGS (7)
  1. ENBREL [Suspect]
     Active Substance: ETANERCEPT
     Indication: Ankylosing spondylitis
     Dosage: 50 MG, ONCE A WEEK
     Route: 058
     Dates: end: 202208
  2. ENBREL [Suspect]
     Active Substance: ETANERCEPT
     Dosage: 50 MG, MONTHLY
     Route: 058
  3. ACECLOFENAC [Concomitant]
     Active Substance: ACECLOFENAC
     Indication: Pain
  4. Ruling [Concomitant]
     Dosage: 20 MG, 1X/DAY (MORNING)
     Route: 065
  5. FOLIC ACID [Concomitant]
     Active Substance: FOLIC ACID
     Dosage: 1 DF, WEEKLY (5MG 1 TAB EVERY THURSDAY)
  6. METHOTREXATE [Concomitant]
     Active Substance: METHOTREXATE
     Dosage: 1 DF, WEEKLY (1 TAB EVERY FRIDAY)
  7. Adronil [Concomitant]
     Dosage: 150 MG, MONTHLY (ON EMPTY STOMACH)

REACTIONS (4)
  - Diabetes mellitus [Unknown]
  - Depressed mood [Unknown]
  - Hypertension [Unknown]
  - Off label use [Unknown]
